FAERS Safety Report 7073445-1 (Version None)
Quarter: 2010Q4

REPORT INFORMATION
  Report Type: 
  Country: None (occurrence: None)
  Receive Date: 20101029
  Receipt Date: 20100618
  Transmission Date: 20110411
  Serious: No
  Sender: FDA-Public Use
  Company Number: A0866102A

PATIENT
  Age: 48 Year
  Sex: Female

DRUGS (5)
  1. ADVAIR DISKUS 100/50 [Suspect]
     Indication: ASTHMA
     Dosage: 1PUFF TWICE PER DAY
     Route: 055
     Dates: start: 20100610
  2. VENTOLIN [Suspect]
     Indication: ASTHMA
     Dosage: 3PUFF THREE TIMES PER DAY
     Route: 055
     Dates: start: 20100603
  3. ALBUTEROL [Suspect]
     Route: 055
  4. SPIRONOLACTONE [Concomitant]
  5. VITAMIN AND MINERAL PRENATAL SUPPLEMENT W/ FOLIC ACID CAP [Concomitant]

REACTIONS (5)
  - COUGH [None]
  - DRUG INEFFECTIVE [None]
  - DRY MOUTH [None]
  - DYSGEUSIA [None]
  - PALPITATIONS [None]
